FAERS Safety Report 12470755 (Version 1)
Quarter: 2016Q2

REPORT INFORMATION
  Report Type: Spontaneous
  Country: US (occurrence: US)
  Receive Date: 20160616
  Receipt Date: 20160616
  Transmission Date: 20160815
  Serious: Yes (Hospitalization)
  Sender: FDA-Public Use
  Company Number: US-ROCHE-1775885

PATIENT
  Sex: Male

DRUGS (1)
  1. XELODA [Suspect]
     Active Substance: CAPECITABINE
     Indication: PRODUCT USED FOR UNKNOWN INDICATION
     Dosage: 500 MG TABS DAYS 1-14; TAKE 4 TABS EVERY 21 DAYS
     Route: 048

REACTIONS (3)
  - Infection [Unknown]
  - Bile duct obstruction [Unknown]
  - Asthenia [Unknown]
